FAERS Safety Report 22889211 (Version 2)
Quarter: 2024Q1

REPORT INFORMATION
  Report Type: Report from Study
  Country: DE (occurrence: DE)
  Receive Date: 20230831
  Receipt Date: 20240301
  Transmission Date: 20240410
  Serious: Yes (Death, Other)
  Sender: FDA-Public Use
  Company Number: DE-SA-2015SA049170

PATIENT
  Age: 38 Year
  Sex: Male

DRUGS (20)
  1. MORPHINE SULFATE [Suspect]
     Active Substance: MORPHINE SULFATE
     Indication: Product used for unknown indication
     Dosage: UNK
     Route: 065
  2. THEOPHYLLINE ANHYDROUS [Suspect]
     Active Substance: THEOPHYLLINE ANHYDROUS
     Indication: Product used for unknown indication
     Dosage: DOSE DESCRIPTION : UNK
     Route: 065
  3. DILTIAZEM HYDROCHLORIDE [Suspect]
     Active Substance: DILTIAZEM HYDROCHLORIDE
     Indication: Product used for unknown indication
     Dosage: DOSE DESCRIPTION : UNK UNK,UNK
     Route: 065
  4. DIAZEPAM [Suspect]
     Active Substance: DIAZEPAM
     Indication: Product used for unknown indication
     Dosage: DOSE DESCRIPTION : UNK
     Route: 065
  5. CAFFEINE [Suspect]
     Active Substance: CAFFEINE
     Indication: Product used for unknown indication
     Dosage: UNK
     Route: 065
  6. ACETAMINOPHEN [Suspect]
     Active Substance: ACETAMINOPHEN
     Indication: Product used for unknown indication
     Dosage: DOSE DESCRIPTION : UNK UNK,UNK
     Route: 065
  7. CODEINE [Suspect]
     Active Substance: CODEINE
     Indication: Product used for unknown indication
     Dosage: DOSE DESCRIPTION : UNK
     Route: 065
  8. PHENACETIN [Suspect]
     Active Substance: PHENACETIN
     Indication: Product used for unknown indication
     Dosage: DOSE DESCRIPTION : UNK UNK,UNK
     Route: 065
  9. HYDROXYZINE [Suspect]
     Active Substance: HYDROXYZINE HYDROCHLORIDE
     Indication: Product used for unknown indication
     Dosage: DOSE DESCRIPTION : UNK UNK,UNK
     Route: 065
  10. NOSCAPINE [Suspect]
     Active Substance: NOSCAPINE
     Indication: Product used for unknown indication
     Dosage: DOSE DESCRIPTION : UNK
     Route: 065
  11. HEROIN [Suspect]
     Active Substance: DIAMORPHINE
     Indication: Product used for unknown indication
     Dosage: DOSE DESCRIPTION : UNK
     Route: 065
  12. LEVAMISOLE [Suspect]
     Active Substance: LEVAMISOLE
     Indication: Product used for unknown indication
     Dosage: DOSE DESCRIPTION : UNK UNK,UNK
     Route: 065
  13. THEOBROMINE [Suspect]
     Active Substance: THEOBROMINE
     Indication: Product used for unknown indication
     Dosage: DOSE DESCRIPTION : UNK
     Route: 065
  14. ALCOHOL [Suspect]
     Active Substance: ALCOHOL
     Indication: Product used for unknown indication
     Dosage: DOSE DESCRIPTION : UNK
     Route: 065
  15. PAPAVERINE [Suspect]
     Active Substance: PAPAVERINE
     Indication: Product used for unknown indication
     Dosage: DOSE DESCRIPTION : UNK
     Route: 065
  16. LIDOCAINE [Suspect]
     Active Substance: LIDOCAINE
     Indication: Product used for unknown indication
     Dosage: DOSE DESCRIPTION : UNK UNK,UNK
     Route: 065
  17. NORDAZEPAM [Suspect]
     Active Substance: NORDAZEPAM
     Indication: Product used for unknown indication
     Dosage: DOSE DESCRIPTION : UNK
     Route: 065
  18. DOXYLAMINE [Suspect]
     Active Substance: DOXYLAMINE
     Indication: Product used for unknown indication
     Dosage: UNK
     Route: 065
  19. COCAINE [Interacting]
     Active Substance: COCAINE
     Indication: Product used for unknown indication
     Dosage: DOSE DESCRIPTION : UNK UNK,UNK
     Route: 065
  20. NICOTINE [Concomitant]
     Active Substance: NICOTINE
     Indication: Product used for unknown indication
     Dosage: UNK
     Route: 065

REACTIONS (6)
  - Accidental death [Fatal]
  - Adulterated product [Fatal]
  - Drug interaction [Fatal]
  - Toxicity to various agents [Fatal]
  - Drug abuse [Fatal]
  - Toxicity to various agents [Fatal]
